FAERS Safety Report 16328904 (Version 2)
Quarter: 2019Q2

REPORT INFORMATION
  Report Type: Spontaneous
  Country: US (occurrence: US)
  Receive Date: 20190519
  Receipt Date: 20190614
  Transmission Date: 20190711
  Serious: No
  Sender: FDA-Public Use
  Company Number: US-ASTRAZENECA-2019SE64272

PATIENT
  Age: 30342 Day
  Sex: Male
  Weight: 83.9 kg

DRUGS (1)
  1. BYDUREON BCISE [Suspect]
     Active Substance: EXENATIDE
     Indication: TYPE 2 DIABETES MELLITUS
     Route: 065
     Dates: start: 201902

REACTIONS (4)
  - Hypoacusis [Not Recovered/Not Resolved]
  - Device malfunction [Unknown]
  - Product dose omission [Unknown]
  - Injection site mass [Unknown]

NARRATIVE: CASE EVENT DATE: 20190417
